FAERS Safety Report 7405188-6 (Version None)
Quarter: 2011Q2

REPORT INFORMATION
  Report Type: 
  Country: None (occurrence: None)
  Receive Date: 20110411
  Receipt Date: 20110401
  Transmission Date: 20111010
  Serious: Yes (Other)
  Sender: FDA-Public Use
  Company Number: HR-BRISTOL-MYERS SQUIBB COMPANY-15662455

PATIENT
  Age: 72 Year
  Sex: Male
  Weight: 104 kg

DRUGS (1)
  1. GLUCOPHAGE [Suspect]
     Indication: BLOOD GLUCOSE INCREASED
     Route: 048
     Dates: start: 20101213, end: 20110204

REACTIONS (3)
  - ABDOMINAL DISCOMFORT [None]
  - GASTRITIS [None]
  - NAUSEA [None]
